FAERS Safety Report 18793704 (Version 1)
Quarter: 2021Q1

REPORT INFORMATION
  Report Type: Other
  Country: NL (occurrence: JP)
  Receive Date: 20210127
  Receipt Date: 20210127
  Transmission Date: 20210419
  Serious: Yes (Other)
  Sender: FDA-Public Use
  Company Number: JP-ASTELLAS-2021US002581

PATIENT
  Age: 61 Year
  Sex: Male

DRUGS (5)
  1. AMBISOME [Suspect]
     Active Substance: AMPHOTERICIN B
     Indication: LIVER ABSCESS
     Route: 042
     Dates: start: 20021008, end: 20021203
  2. VANCOMYCIN HYDROCHLORIDE. [Suspect]
     Active Substance: VANCOMYCIN HYDROCHLORIDE
     Indication: LIVER ABSCESS
     Route: 042
     Dates: start: 20020708, end: 20021203
  3. GABEXATE MESILATE [Suspect]
     Active Substance: GABEXATE MESYLATE
     Indication: PANCREATITIS
     Route: 042
     Dates: start: 20021105, end: 20021203
  4. CEFEPIME DIHYDROCHLORIDE [Suspect]
     Active Substance: CEFEPIME HYDROCHLORIDE
     Indication: LIVER ABSCESS
     Route: 042
     Dates: start: 20021102, end: 20021206
  5. ZANTAC [Suspect]
     Active Substance: RANITIDINE HYDROCHLORIDE
     Indication: GASTRIC ULCER
     Route: 042

REACTIONS (1)
  - Pancytopenia [Not Recovered/Not Resolved]
